FAERS Safety Report 16049310 (Version 2)
Quarter: 2019Q2

REPORT INFORMATION
  Report Type: Spontaneous
  Country: US (occurrence: US)
  Receive Date: 20190307
  Receipt Date: 20190611
  Transmission Date: 20190711
  Serious: No
  Sender: FDA-Public Use
  Company Number: US-TEVA-2019-US-1009902

PATIENT
  Sex: Female

DRUGS (2)
  1. ESTRADIOL. [Suspect]
     Active Substance: ESTRADIOL
     Dosage: HALF DOSAGE OF 100 MG
  2. ESTROPIPATE TABLET [Suspect]
     Active Substance: ESTROPIPATE
     Route: 065

REACTIONS (5)
  - Drug ineffective [Unknown]
  - Therapy change [Unknown]
  - Chest pain [Unknown]
  - Breast tenderness [Unknown]
  - Adverse reaction [Unknown]
